FAERS Safety Report 8795206 (Version 6)
Quarter: 2013Q3

REPORT INFORMATION
  Report Type: Spontaneous
  Country: US (occurrence: US)
  Receive Date: 20120917
  Receipt Date: 20130709
  Transmission Date: 20140515
  Serious: Yes (Hospitalization, Other)
  Sender: FDA-Public Use
  Company Number: US-009507513-1202USA01971

PATIENT
  Sex: Female
  Weight: 58.5 kg

DRUGS (10)
  1. FOSAMAX [Suspect]
     Indication: OSTEOPENIA
     Dosage: 10 MG, QD
     Route: 048
     Dates: start: 199703, end: 20001117
  2. FOSAMAX [Suspect]
     Indication: OSTEOPOROSIS
     Dosage: 70 MG, WEEKLY
     Route: 048
  3. FOSAMAX PLUS D [Suspect]
     Indication: OSTEOPENIA
     Dosage: 70 MG, WEEKLY
     Route: 048
     Dates: start: 20001218, end: 20060821
  4. FOSAMAX PLUS D [Suspect]
     Indication: OSTEOPOROSIS
  5. MONOPRIL [Concomitant]
  6. LIPITOR [Concomitant]
  7. TENORMIN [Concomitant]
  8. ASPIRIN [Concomitant]
  9. OS-CAL (CALCITRIOL) [Concomitant]
  10. DYAZIDE [Concomitant]

REACTIONS (12)
  - Femur fracture [Recovered/Resolved]
  - Open reduction of fracture [Unknown]
  - Fall [Unknown]
  - Low turnover osteopathy [Unknown]
  - Spinal compression fracture [Unknown]
  - Fall [Unknown]
  - Ligament sprain [Unknown]
  - Arthropathy [Unknown]
  - Bursitis [Unknown]
  - Bursitis [Unknown]
  - Arthritis [Unknown]
  - Pyrexia [Recovered/Resolved]
